FAERS Safety Report 8324817-6 (Version None)
Quarter: 2012Q2

REPORT INFORMATION
  Report Type: 
  Country: None (occurrence: None)
  Receive Date: 20120501
  Receipt Date: 20120424
  Transmission Date: 20120825
  Serious: Yes (Hospitalization)
  Sender: FDA-Public Use
  Company Number: US-RB-038693-12

PATIENT
  Age: 77 Year
  Sex: Male

DRUGS (1)
  1. MUCINEX [Suspect]
     Indication: PRODUCT USED FOR UNKNOWN INDICATION
     Dosage: TOOK 1 TABLET AT 2.15PM ON 15-APR-2012
     Route: 048
     Dates: start: 20120415

REACTIONS (6)
  - RETCHING [None]
  - MEMORY IMPAIRMENT [None]
  - PNEUMONIA [None]
  - CONFUSIONAL STATE [None]
  - SOMNOLENCE [None]
  - FATIGUE [None]
